FAERS Safety Report 18511418 (Version 1)
Quarter: 2020Q4

REPORT INFORMATION
  Report Type: Spontaneous
  Country: US (occurrence: US)
  Receive Date: 20201117
  Receipt Date: 20201117
  Transmission Date: 20210114
  Serious: Yes (Hospitalization)
  Sender: FDA-Public Use
  Company Number: None

PATIENT
  Age: 59 Year
  Sex: Male

DRUGS (4)
  1. HUMIRA [Suspect]
     Active Substance: ADALIMUMAB
     Indication: ANKYLOSING SPONDYLITIS
     Dosage: ?          OTHER FREQUENCY:EVERY 2 WKS;?
     Route: 058
     Dates: start: 20190405
  2. EZETIMIBE TAB 10MG [Concomitant]
     Dates: start: 20200902
  3. TIZANIDINE TAB 2MG [Concomitant]
     Dates: start: 20200828
  4. OMEPRAZOLE CAP 40MG [Concomitant]
     Active Substance: OMEPRAZOLE
     Dates: start: 20200828

REACTIONS (2)
  - Therapy interrupted [None]
  - SARS-CoV-2 test positive [None]

NARRATIVE: CASE EVENT DATE: 20201116
